FAERS Safety Report 22236004 (Version 1)
Quarter: 2023Q2

REPORT INFORMATION
  Report Type: Spontaneous
  Country: US (occurrence: US)
  Receive Date: 20230420
  Receipt Date: 20230420
  Transmission Date: 20230721
  Serious: Yes (Hospitalization, Other)
  Sender: FDA-Public Use
  Company Number: US-PFIZER INC-PV202300039335

PATIENT
  Age: 72 Year
  Sex: Female
  Weight: 49.887 kg

DRUGS (1)
  1. IBRANCE [Suspect]
     Active Substance: PALBOCICLIB
     Indication: Neoplasm malignant
     Dosage: 125 MG, 1X/DAY (125 MG ONCE A DAY)
     Dates: start: 202211

REACTIONS (1)
  - Cellulitis [Unknown]
